FAERS Safety Report 23069982 (Version 3)
Quarter: 2023Q4

REPORT INFORMATION
  Report Type: Report from Study
  Country: US (occurrence: US)
  Receive Date: 20231016
  Receipt Date: 20231110
  Transmission Date: 20240110
  Serious: Yes (Hospitalization, Disabling)
  Sender: FDA-Public Use
  Company Number: US-ALKERMES INC.-ALK-2023-004084

PATIENT
  Age: 57 Year
  Sex: Female
  Weight: 62.585 kg

DRUGS (11)
  1. BUPRENORPHINE [Suspect]
     Active Substance: BUPRENORPHINE
     Indication: Drug use disorder
     Dosage: UNK MILLIGRAM, Q3WK , DAY 1 WEEKS 3 + 6
     Route: 030
     Dates: start: 20230818
  2. PLACEBO [Suspect]
     Active Substance: UNSPECIFIED INGREDIENT
     Indication: Drug use disorder
     Dosage: UNK MILLIGRAM, Q3WK , DAY 1 WEEKS 3 + 6
     Route: 030
     Dates: start: 20230818
  3. VIVITROL [Suspect]
     Active Substance: NALTREXONE
     Indication: Drug use disorder
     Dosage: UNK MILLIGRAM, Q3WK , DAY 1 WEEKS 3 + 6
     Route: 030
     Dates: start: 20230818
  4. VIVITROL [Suspect]
     Active Substance: NALTREXONE
     Indication: Drug use disorder
     Dosage: UNK MILLIGRAM, Q3WK , DAY 1 WEEKS 3 + 6
     Route: 030
     Dates: start: 20230818
  5. BUPRENORPHINE [Suspect]
     Active Substance: BUPRENORPHINE
     Dosage: UNK MILLIGRAM, Q4WK, DAY 4 TO 6
     Route: 058
  6. PLACEBO [Suspect]
     Active Substance: UNSPECIFIED INGREDIENT
     Dosage: UNK MILLIGRAM, Q4WK, DAY 4 TO 6
     Route: 058
  7. VIVITROL [Suspect]
     Active Substance: NALTREXONE
     Dosage: UNK MILLIGRAM, Q4WK, DAY 4 TO 6
     Route: 058
  8. VIVITROL [Suspect]
     Active Substance: NALTREXONE
     Dosage: UNK MILLIGRAM, Q4WK, DAY 4 TO 6
     Route: 058
  9. SEROQUEL [Concomitant]
     Active Substance: QUETIAPINE FUMARATE
     Indication: Product used for unknown indication
     Dosage: 500 MILLIGRAM, QD
     Route: 065
  10. SERTRALINE [Concomitant]
     Active Substance: SERTRALINE HYDROCHLORIDE
     Indication: Product used for unknown indication
     Dosage: 200 MILLIGRAM, QD
     Route: 065
  11. AMLODIPINE [Concomitant]
     Active Substance: AMLODIPINE BESYLATE
     Indication: Product used for unknown indication
     Dosage: UNK
     Route: 065

REACTIONS (1)
  - Depressive symptom [Recovered/Resolved]

NARRATIVE: CASE EVENT DATE: 20231011
